FAERS Safety Report 4900538-4 (Version None)
Quarter: 2006Q1

REPORT INFORMATION
  Report Type: 
  Country: None (occurrence: None)
  Receive Date: 20060127
  Receipt Date: 20051111
  Transmission Date: 20060701
  Serious: Yes (Other)
  Sender: FDA-Public Use
  Company Number: CLOF-10153

PATIENT
  Age: 71 Year
  Sex: Female

DRUGS (10)
  1. CLOFARABINE [Suspect]
     Indication: ACUTE MYELOID LEUKAEMIA
     Dosage: 58.8 MG QD X 3 IV
     Route: 042
     Dates: start: 20050829
  2. CYTARABINE [Suspect]
     Indication: ACUTE MYELOID LEUKAEMIA
     Dosage: 39.2 MG QD SC
     Route: 058
     Dates: start: 20050829
  3. ATARAX [Concomitant]
  4. DOXEPIN [Concomitant]
  5. CASPOFUNGIN [Concomitant]
  6. LORAZEPAM [Concomitant]
  7. HALDOL [Concomitant]
  8. METOPROLOL [Concomitant]
  9. LEVAQUIN [Concomitant]
  10. VALTREX [Concomitant]

REACTIONS (1)
  - SQUAMOUS CELL CARCINOMA [None]
